FAERS Safety Report 18904210 (Version 1)
Quarter: 2021Q1

REPORT INFORMATION
  Report Type: Spontaneous
  Country: US (occurrence: US)
  Receive Date: 20210217
  Receipt Date: 20210217
  Transmission Date: 20210420
  Serious: No
  Sender: FDA-Public Use
  Company Number: US-SA-2021SA047413

PATIENT
  Sex: Female

DRUGS (1)
  1. LANTUS XR [Suspect]
     Active Substance: INSULIN GLARGINE
     Indication: TYPE 2 DIABETES MELLITUS
     Dosage: 45 UNITS AM 35 UNITS PM, BID

REACTIONS (3)
  - Inappropriate schedule of product administration [Unknown]
  - Injection site extravasation [Unknown]
  - Product storage error [Unknown]
